FAERS Safety Report 6322436-4 (Version None)
Quarter: 2009Q3

REPORT INFORMATION
  Report Type: 
  Country: None (occurrence: None)
  Receive Date: 20090820
  Receipt Date: 20090805
  Transmission Date: 20100115
  Serious: Yes (Hospitalization)
  Sender: FDA-Public Use
  Company Number: 2009BM000086

PATIENT
  Age: 16 Year
  Sex: Female
  Weight: 44 kg

DRUGS (14)
  1. KUVAN [Suspect]
     Indication: PHENYLKETONURIA
     Dosage: 900 MG; QD; PO
     Route: 048
     Dates: start: 20080318, end: 20090125
  2. KUVAN [Suspect]
     Indication: PHENYLKETONURIA
     Dosage: 900 MG; QD; PO
     Route: 048
     Dates: start: 20090205, end: 20090218
  3. KUVAN [Suspect]
     Indication: PHENYLKETONURIA
     Dosage: 900 MG; QD; PO
     Route: 048
     Dates: start: 20090301
  4. BENADRYL [Concomitant]
  5. SINGULAIR [Concomitant]
  6. ZOLOFT [Concomitant]
  7. ALPRAZOLAM PROTONIX /01263201/ [Concomitant]
  8. PROTONIX [Concomitant]
  9. CENTRUM [Concomitant]
  10. VENTOLIIN [Concomitant]
  11. TOPAMAX [Concomitant]
  12. NUTRIENTS WITHOUT PHENYLALANINE [Concomitant]
  13. IMITREX [Concomitant]
  14. DROSPIRENONE AND ETHINYL ESTRADIOL [Concomitant]

REACTIONS (17)
  - ANXIETY [None]
  - BACK PAIN [None]
  - DEPRESSION [None]
  - DIARRHOEA [None]
  - DIZZINESS [None]
  - DYSPHONIA [None]
  - EPSTEIN-BARR VIRUS INFECTION [None]
  - HEADACHE [None]
  - LYMPHADENITIS [None]
  - OROPHARYNGEAL PAIN [None]
  - PAIN [None]
  - PHOTOPHOBIA [None]
  - POOR QUALITY SLEEP [None]
  - SCOLIOSIS [None]
  - SINUSITIS [None]
  - TREATMENT NONCOMPLIANCE [None]
  - VOMITING [None]
